FAERS Safety Report 9399653 (Version 1)
Quarter: 2013Q3

REPORT INFORMATION
  Report Type: Spontaneous
  Country: US (occurrence: US)
  Receive Date: 20130715
  Receipt Date: 20130715
  Transmission Date: 20140515
  Serious: No
  Sender: FDA-Public Use
  Company Number: US-BIOGENIDEC-2013BI063582

PATIENT
  Age: 27 Year
  Sex: Female

DRUGS (4)
  1. TYSABRI [Suspect]
     Indication: MULTIPLE SCLEROSIS
     Route: 042
     Dates: start: 20080611, end: 201208
  2. IVIG [Concomitant]
  3. IVIG [Concomitant]
     Indication: VIITH NERVE PARALYSIS
  4. IVIG [Concomitant]
     Indication: MULTIPLE SCLEROSIS RELAPSE

REACTIONS (5)
  - Somnolence [Unknown]
  - Bone disorder [Unknown]
  - Urticaria [Recovered/Resolved]
  - Multiple sclerosis relapse [Unknown]
  - Vomiting [Unknown]
